FAERS Safety Report 21700761 (Version 1)
Quarter: 2022Q4

REPORT INFORMATION
  Report Type: Spontaneous
  Country: DK (occurrence: DK)
  Receive Date: 20221208
  Receipt Date: 20221208
  Transmission Date: 20230112
  Serious: Yes (Hospitalization)
  Sender: FDA-Public Use
  Company Number: DK-MYLANLABS-2022M1136136

PATIENT
  Age: 18 Year
  Sex: Female

DRUGS (2)
  1. ETHINYL ESTRADIOL\LEVONORGESTREL [Suspect]
     Active Substance: ETHINYL ESTRADIOL\LEVONORGESTREL
     Indication: Contraception
     Dosage: 1 DOSAGE FORM, (1 TABLET FOR 21 DAYS, BREAK FOR 7 DAYS )
     Route: 048
     Dates: start: 20190313, end: 20210807
  2. COMIRNATY [Suspect]
     Active Substance: TOZINAMERAN
     Indication: COVID-19 immunisation
     Dosage: 1 DOSAGE FORM, (DOSE 2) START 20-JUL-2021
     Route: 065
     Dates: end: 20210720

REACTIONS (5)
  - Disturbance in attention [Recovered/Resolved]
  - Fatigue [Recovered/Resolved]
  - Visual impairment [Recovered/Resolved]
  - Headache [Not Recovered/Not Resolved]
  - Cerebral venous sinus thrombosis [Unknown]

NARRATIVE: CASE EVENT DATE: 20210101
